FAERS Safety Report 12653002 (Version 1)
Quarter: 2016Q3

REPORT INFORMATION
  Report Type: Spontaneous
  Country: IT (occurrence: IT)
  Receive Date: 20160815
  Receipt Date: 20160815
  Transmission Date: 20161109
  Serious: Yes (Other)
  Sender: FDA-Public Use
  Company Number: IT-B.I. PHARMACEUTICALS,INC./RIDGEFIELD-2016-BI-53069BP

PATIENT
  Age: 60 Year
  Sex: Female

DRUGS (3)
  1. PRAMIPEXOLO [Suspect]
     Active Substance: PRAMIPEXOLE
     Indication: PARKINSON^S DISEASE
     Dosage: 6.3 MG
     Route: 048
     Dates: start: 20150329, end: 20150412
  2. MIRAPEXIN [Suspect]
     Active Substance: PRAMIPEXOLE
     Indication: PARKINSON^S DISEASE
     Route: 065
     Dates: start: 20150413
  3. SANDOZ [Concomitant]
     Active Substance: UNSPECIFIED INGREDIENT
     Indication: PARKINSON^S DISEASE
     Route: 065

REACTIONS (2)
  - Drug effect decreased [Recovered/Resolved]
  - Medication residue present [Recovered/Resolved]

NARRATIVE: CASE EVENT DATE: 20150331
